FAERS Safety Report 6018517-5 (Version None)
Quarter: 2008Q4

REPORT INFORMATION
  Report Type: 
  Country: None (occurrence: None)
  Receive Date: 20081223
  Receipt Date: 20081211
  Transmission Date: 20090506
  Serious: Yes (Other)
  Sender: FDA-Public Use
  Company Number: NL-PFIZER INC-2008156934

PATIENT

DRUGS (1)
  1. CHAMPIX [Suspect]
     Indication: SMOKING CESSATION THERAPY
     Dosage: 1 MG, 2X/DAY
     Route: 048
     Dates: start: 20080409, end: 20080530

REACTIONS (4)
  - DEPRESSED MOOD [None]
  - INSOMNIA [None]
  - SUICIDAL IDEATION [None]
  - VISUAL ACUITY REDUCED [None]
